FAERS Safety Report 9254579 (Version 2)
Quarter: 2013Q2

REPORT INFORMATION
  Report Type: Spontaneous
  Country: US (occurrence: US)
  Receive Date: 20130425
  Receipt Date: 20130520
  Transmission Date: 20140414
  Serious: No
  Sender: FDA-Public Use
  Company Number: US-009507513-1304USA010048

PATIENT
  Sex: Male

DRUGS (2)
  1. REBETOL [Suspect]
     Indication: HEPATITIS C
     Dosage: UNK
     Dates: start: 19950101, end: 19950201
  2. INTRONA [Suspect]
     Indication: HEPATITIS C
     Dosage: UNK
     Dates: start: 19950101, end: 19950201

REACTIONS (5)
  - Malaise [Unknown]
  - Depression [Unknown]
  - Injection site pain [Unknown]
  - Malaise [Unknown]
  - Depression [Unknown]
